FAERS Safety Report 9159563 (Version 1)
Quarter: 2013Q1

REPORT INFORMATION
  Report Type: Spontaneous
  Country: US (occurrence: US)
  Receive Date: 20130313
  Receipt Date: 20130313
  Transmission Date: 20140127
  Serious: No
  Sender: FDA-Public Use
  Company Number: US-MYLANLABS-2013S1000812

PATIENT
  Age: 70 Year
  Sex: Female

DRUGS (2)
  1. PIOGLITAZONE [Suspect]
     Indication: DIABETES MELLITUS
     Route: 048
     Dates: start: 201211
  2. THYROID [Concomitant]
     Indication: HYPOTHYROIDISM

REACTIONS (3)
  - Rash [Recovering/Resolving]
  - Muscle spasms [Not Recovered/Not Resolved]
  - Reaction to drug excipients [Not Recovered/Not Resolved]
